FAERS Safety Report 8329433-8 (Version None)
Quarter: 2012Q2

REPORT INFORMATION
  Report Type: 
  Country: None (occurrence: None)
  Receive Date: 20120502
  Receipt Date: 20120424
  Transmission Date: 20120825
  Serious: Yes (Hospitalization)
  Sender: FDA-Public Use
  Company Number: FR-ROCHE-1062943

PATIENT
  Sex: Male

DRUGS (3)
  1. MABTHERA [Suspect]
     Indication: LYMPHOMA
     Route: 042
     Dates: start: 20120423, end: 20120423
  2. CRESTOR [Concomitant]
     Indication: HYPERCHOLESTEROLAEMIA
  3. VALSARTAN  AND HYDROCHLOROTHIAZIDE [Concomitant]
     Indication: HYPERTENSION

REACTIONS (4)
  - LIVEDO RETICULARIS [None]
  - CYANOSIS [None]
  - INFUSION RELATED REACTION [None]
  - TACHYPNOEA [None]
